FAERS Safety Report 21667862 (Version 1)
Quarter: 2022Q4

REPORT INFORMATION
  Report Type: Spontaneous
  Country: US (occurrence: None)
  Receive Date: 20221130
  Receipt Date: 20221130
  Transmission Date: 20230113
  Serious: Yes (Hospitalization)
  Sender: FDA-Public Use
  Company Number: None

PATIENT
  Sex: Male

DRUGS (9)
  1. ASTAGRAF XL [Suspect]
     Active Substance: TACROLIMUS
     Indication: Renal transplant
     Dosage: FREQUENCY : DAILY;?
     Route: 048
     Dates: start: 20221111
  2. ATORVASTATIN [Concomitant]
     Active Substance: ATORVASTATIN
  3. BUMETANIDE TAB [Concomitant]
  4. ELIQUIS [Concomitant]
     Active Substance: APIXABAN
  5. LANTUS INJ [Concomitant]
  6. METFORMIN TAB [Concomitant]
  7. METOPROLOL TAR TAB [Concomitant]
  8. MULTIVITAMIN TAB [Concomitant]
  9. MYCOPHENOLATE CAP [Concomitant]

REACTIONS (1)
  - Urinary tract infection [None]
